FAERS Safety Report 18428268 (Version 1)
Quarter: 2020Q4

REPORT INFORMATION
  Report Type: Spontaneous
  Country: DE (occurrence: DE)
  Receive Date: 20201026
  Receipt Date: 20201026
  Transmission Date: 20210114
  Serious: Yes (Hospitalization)
  Sender: FDA-Public Use
  Company Number: NVSC2020DE281290

PATIENT
  Age: 67 Year
  Sex: Female
  Weight: 49 kg

DRUGS (3)
  1. PALONOSETRON. [Concomitant]
     Active Substance: PALONOSETRON HYDROCHLORIDE
     Indication: PREMEDICATION
     Route: 040
     Dates: start: 20200907, end: 20200907
  2. DEXAHEXAL [Concomitant]
     Indication: PREMEDICATION
     Dosage: 8 MG, OT, IN 100 ML NACL 0,9%
     Route: 042
     Dates: start: 20200907, end: 20200907
  3. OXALIPLATIN. [Suspect]
     Active Substance: OXALIPLATIN
     Indication: RECTAL CANCER
     Dosage: 2. ZYKLUS, 198 MG VON 12:00 BIS 15:00,FREEFLEX+,TR?GERL?SUNG GLUCOSE
     Route: 042
     Dates: start: 20200907

REACTIONS (2)
  - Dyspnoea [Unknown]
  - Stridor [Unknown]

NARRATIVE: CASE EVENT DATE: 20200907
